FAERS Safety Report 8682721 (Version 3)
Quarter: 2012Q4

REPORT INFORMATION
  Report Type: 
  Country: DE (occurrence: IT)
  Receive Date: 20120725
  Receipt Date: 20121220
  Transmission Date: 20130627
  Serious: Yes (Other)
  Sender: FDA-Public Use
  Company Number: IT-BAYER-2012-052139

PATIENT
  Age: 80 Year
  Sex: Female
  Weight: 68 kg

DRUGS (22)
  1. PLACEBO [Suspect]
     Indication: THYROID CANCER
     Dosage: 400 mg, BID
     Route: 048
     Dates: start: 20101119, end: 20101220
  2. PLACEBO [Suspect]
     Indication: THYROID CANCER
     Dosage: 400 mg, BID
     Route: 048
     Dates: start: 20101221, end: 20110110
  3. PLACEBO [Suspect]
     Indication: THYROID CANCER
     Dosage: 400 mg, BID
     Route: 048
     Dates: start: 20110111, end: 20110209
  4. PLACEBO [Suspect]
     Indication: THYROID CANCER
     Dosage: 400 mg, BID
     Route: 048
     Dates: start: 20110210, end: 20110310
  5. PLACEBO [Suspect]
     Indication: THYROID CANCER
     Dosage: 400 mg, BID
     Route: 048
     Dates: start: 20110311, end: 20110407
  6. PLACEBO [Suspect]
     Indication: THYROID CANCER
     Dosage: 400 mg, BID
     Route: 048
     Dates: start: 20110408, end: 20110511
  7. PLACEBO [Suspect]
     Indication: THYROID CANCER
     Dosage: 400 mg, BID
     Route: 048
     Dates: start: 20110512, end: 20110602
  8. PLACEBO [Suspect]
     Indication: THYROID CANCER
     Dosage: 400 mg, BID
     Route: 048
     Dates: start: 20110603, end: 20110626
  9. PLACEBO [Suspect]
     Indication: THYROID CANCER
     Dosage: 400 mg, BID
     Route: 048
     Dates: start: 20110627, end: 20110816
  10. PLACEBO [Suspect]
     Indication: THYROID CANCER
     Dosage: 400 mg, BID
     Route: 048
     Dates: start: 20110817, end: 20110925
  11. PLACEBO [Suspect]
     Indication: THYROID CANCER
     Dosage: 400 mg, BID
     Route: 048
     Dates: start: 20110926, end: 20111023
  12. NORMOTHEN [Concomitant]
     Indication: HYPERTENSION
     Dosage: Daily dose 2 mg
     Route: 048
     Dates: start: 2008
  13. LEVOTHYROXINE [Concomitant]
     Indication: HYPOTHYROIDISM POST ABLATIVE
     Dosage: Daily dose 125 ?g
     Route: 048
     Dates: start: 20061223, end: 20101222
  14. LEVOTHYROXINE [Concomitant]
     Indication: INCREASED TSH
     Dosage: Daily dose 112.5 ?g
     Route: 048
     Dates: start: 20101223, end: 20110520
  15. LEVOTHYROXINE [Concomitant]
     Indication: HYPOTHYROIDISM POST ABLATIVE
     Dosage: Daily dose 100 ?g
     Route: 048
     Dates: start: 20110521, end: 20111102
  16. LEVOTHYROXINE [Concomitant]
     Indication: HYPOTHYROIDISM POST ABLATIVE
     Dosage: Daily dose 75 ?g
     Route: 048
     Dates: start: 20111103, end: 20111217
  17. LEVOTHYROXINE [Concomitant]
     Indication: HYPOTHYROIDISM POST ABLATIVE
     Dosage: Daily dose 100 ?g
     Route: 048
     Dates: start: 20111218, end: 20120110
  18. LEVOTHYROXINE [Concomitant]
     Indication: HYPOTHYROIDISM POST ABLATIVE
     Dosage: Daily dose 112.5 ?g
     Route: 048
     Dates: start: 20120111, end: 20120412
  19. LEVOTHYROXINE [Concomitant]
     Indication: HYPOTHYROIDISM POST ABLATIVE
     Dosage: Daily dose 112.5 ?g
     Route: 048
     Dates: start: 20120413
  20. IMODIUM [Concomitant]
     Indication: DIARRHEA
     Dosage: Daily dose 2 mg
     Route: 048
     Dates: start: 20120415
  21. SELEPARINA [Concomitant]
     Indication: BREAST NODULE
     Dosage: Daily dose .4 ml
     Dates: start: 20120207, end: 20120221
  22. AUGMENTIN [Concomitant]
     Indication: BREAST NODULE
     Dosage: Daily dose 1000 mg
     Dates: start: 20120216, end: 20120222

REACTIONS (1)
  - Bladder neoplasm [Recovered/Resolved]
